FAERS Safety Report 21537433 (Version 1)
Quarter: 2022Q4

REPORT INFORMATION
  Report Type: Spontaneous
  Country: HR (occurrence: HR)
  Receive Date: 20221101
  Receipt Date: 20221101
  Transmission Date: 20230113
  Serious: Yes (Other)
  Sender: FDA-Public Use
  Company Number: None

PATIENT

DRUGS (2)
  1. SUBUTEX [Suspect]
     Active Substance: BUPRENORPHINE HYDROCHLORIDE
     Indication: Product used for unknown indication
     Dosage: 3 DOSAGE FORM, QD
     Route: 048
     Dates: start: 20220913, end: 20220913
  2. PAROXETINE HYDROCHLORIDE [Suspect]
     Active Substance: PAROXETINE HYDROCHLORIDE
     Indication: Product used for unknown indication
     Dosage: 6 DOSAGE FORM, QD
     Route: 048
     Dates: start: 20220913, end: 20220913

REACTIONS (10)
  - PO2 decreased [Unknown]
  - Sinus tachycardia [Unknown]
  - Dyspnoea [Unknown]
  - Intentional overdose [Unknown]
  - Muscle twitching [Unknown]
  - Drug abuse [Unknown]
  - Oxygen saturation decreased [Unknown]
  - Somnolence [Unknown]
  - Hypotension [Unknown]
  - Off label use [Recovered/Resolved]

NARRATIVE: CASE EVENT DATE: 20220913
